FAERS Safety Report 10408597 (Version 2)
Quarter: 2014Q3

REPORT INFORMATION
  Report Type: Spontaneous
  Country: BR (occurrence: BR)
  Receive Date: 20140826
  Receipt Date: 20140911
  Transmission Date: 20150326
  Serious: Yes (Other)
  Sender: FDA-Public Use
  Company Number: PHHY2014BR105822

PATIENT
  Sex: Male

DRUGS (5)
  1. EXELON PATCH [Suspect]
     Active Substance: RIVASTIGMINE
     Dosage: 13.3 MG (27MG/15CM2) PER DAY
     Route: 062
  2. EXELON PATCH [Suspect]
     Active Substance: RIVASTIGMINE
     Indication: DEMENTIA ALZHEIMER^S TYPE
     Dosage: 9.5 MG (18MG/10CM2) PER DAY
     Route: 062
     Dates: start: 201304
  3. SELOZOK [Concomitant]
     Active Substance: METOPROLOL SUCCINATE
     Indication: CARDIAC DISORDER
     Dosage: 1 DF PER DAY
     Route: 048
     Dates: start: 2011
  4. PRESS PLUS [Concomitant]
     Indication: HYPERTENSION
     Dosage: 1 DF PER DAY
     Route: 048
  5. EXELON PATCH [Suspect]
     Active Substance: RIVASTIGMINE
     Dosage: 9.5 MG (18MG/10CM2) PER DAY
     Route: 062

REACTIONS (7)
  - Pallor [Recovered/Resolved]
  - Hallucination [Recovered/Resolved]
  - Abdominal discomfort [Recovered/Resolved]
  - Syncope [Recovered/Resolved]
  - Erythema [Recovered/Resolved]
  - Disorientation [Recovered/Resolved]
  - Loss of consciousness [Recovered/Resolved]
